FAERS Safety Report 5714389-4 (Version None)
Quarter: 2008Q2

REPORT INFORMATION
  Report Type: 
  Country: None (occurrence: None)
  Receive Date: 20080423
  Receipt Date: 20080416
  Transmission Date: 20081010
  Serious: Yes (Other)
  Sender: FDA-Public Use
  Company Number: PHHY2008JP05758

PATIENT

DRUGS (1)
  1. DIOVAN [Suspect]
     Dosage: 1120 MG, ONCE/SINGLE
     Route: 048
     Dates: start: 20080416

REACTIONS (1)
  - OVERDOSE [None]
